FAERS Safety Report 5766058-2 (Version None)
Quarter: 2008Q2

REPORT INFORMATION
  Report Type: 
  Country: None (occurrence: None)
  Receive Date: 20080611
  Receipt Date: 20070502
  Transmission Date: 20081010
  Serious: No
  Sender: FDA-Public Use
  Company Number: US-BRISTOL-MYERS SQUIBB COMPANY-13767504

PATIENT
  Age: 71 Year
  Sex: Female

DRUGS (1)
  1. MONOPRIL [Suspect]

REACTIONS (1)
  - FATIGUE [None]
